FAERS Safety Report 24884317 (Version 1)
Quarter: 2025Q1

REPORT INFORMATION
  Report Type: Spontaneous
  Country: US (occurrence: None)
  Receive Date: 20250124
  Receipt Date: 20250124
  Transmission Date: 20250409
  Serious: Yes (Other)
  Sender: FDA-CTU
  Company Number: None

PATIENT

DRUGS (1)
  1. PERSERIS [Suspect]
     Active Substance: RISPERIDONE

REACTIONS (3)
  - Product packaging confusion [None]
  - Product label confusion [None]
  - Product communication issue [None]

NARRATIVE: CASE EVENT DATE: 20250110
